FAERS Safety Report 4968653-7 (Version None)
Quarter: 2006Q2

REPORT INFORMATION
  Report Type: 
  Country: None (occurrence: None)
  Receive Date: 20060405
  Receipt Date: 20060328
  Transmission Date: 20061013
  Serious: Yes (Life-Threatening, Other)
  Sender: FDA-Public Use
  Company Number: 2006035153

PATIENT
  Age: 50 Year
  Sex: Female
  Weight: 80 kg

DRUGS (1)
  1. DEPO-MEDROL [Suspect]
     Indication: RHEUMATOID ARTHRITIS
     Dosage: 80 MG (80 MG, STAT), INTRAMUSCULAR
     Route: 030

REACTIONS (4)
  - ANAPHYLACTIC SHOCK [None]
  - ASTHENIA [None]
  - HYPERHIDROSIS [None]
  - PULMONARY EMBOLISM [None]
